FAERS Safety Report 20788523 (Version 2)
Quarter: 2022Q2

REPORT INFORMATION
  Report Type: Spontaneous
  Country: US (occurrence: US)
  Receive Date: 20220505
  Receipt Date: 20220628
  Transmission Date: 20220721
  Serious: No
  Sender: FDA-Public Use
  Company Number: US-BIOGEN-2022BI01120068

PATIENT
  Sex: Female

DRUGS (2)
  1. TYSABRI [Interacting]
     Active Substance: NATALIZUMAB
     Indication: Multiple sclerosis
     Route: 065
  2. TYSABRI [Interacting]
     Active Substance: NATALIZUMAB

REACTIONS (1)
  - Drug interaction [Unknown]
